FAERS Safety Report 17511336 (Version 5)
Quarter: 2020Q3

REPORT INFORMATION
  Report Type: Report from Study
  Country: AU (occurrence: AU)
  Receive Date: 20200306
  Receipt Date: 20200826
  Transmission Date: 20201104
  Serious: Yes (Hospitalization)
  Sender: FDA-Public Use
  Company Number: AU-BEIGENE USA INC-BGN-2020-000343

PATIENT

DRUGS (2)
  1. BGB?3111 [Suspect]
     Active Substance: ZANUBRUTINIB
     Indication: CENTRAL NERVOUS SYSTEM LYMPHOMA
     Dosage: 160 MILLIGRAM, BID
     Route: 048
     Dates: start: 20190318, end: 20200227
  2. TISLELIZUMAB. [Suspect]
     Active Substance: TISLELIZUMAB
     Indication: CENTRAL NERVOUS SYSTEM LYMPHOMA
     Dosage: 200 MILLIGRAM, Q3WK
     Route: 042
     Dates: start: 20190318, end: 20200227

REACTIONS (1)
  - Subdural haematoma [Recovered/Resolved]

NARRATIVE: CASE EVENT DATE: 20200226
